FAERS Safety Report 25132060 (Version 1)
Quarter: 2025Q1

REPORT INFORMATION
  Report Type: Spontaneous
  Country: US (occurrence: US)
  Receive Date: 20250328
  Receipt Date: 20250328
  Transmission Date: 20250409
  Serious: No
  Sender: BAUSCH AND LOMB
  Company Number: US-BAUSCHBL-2025BNL004919

PATIENT
  Age: 77 Year
  Sex: Female

DRUGS (4)
  1. XIIDRA [Suspect]
     Active Substance: LIFITEGRAST
     Indication: Dry eye
     Route: 065
     Dates: start: 202503
  2. XIIDRA [Suspect]
     Active Substance: LIFITEGRAST
     Indication: Vision blurred
  3. SYSTANE (HYPROMELLOSE 2910 (4000 MPA.S)) [Concomitant]
     Active Substance: HYPROMELLOSE 2910 (4000 MPA.S)
     Indication: Product used for unknown indication
     Route: 065
  4. REFRESH TEARS [Concomitant]
     Active Substance: CARBOXYMETHYLCELLULOSE SODIUM
     Indication: Product used for unknown indication
     Route: 065

REACTIONS (2)
  - Eye pain [Unknown]
  - Product storage error [Unknown]

NARRATIVE: CASE EVENT DATE: 20250301
